FAERS Safety Report 21031364 (Version 2)
Quarter: 2022Q3

REPORT INFORMATION
  Report Type: Other
  Country: ZA (occurrence: None)
  Receive Date: 20220701
  Receipt Date: 20220929
  Transmission Date: 20221027
  Serious: Yes (Hospitalization, Other)
  Sender: FDA-Public Use
  Company Number: ZA-ROCHE-3124311

PATIENT
  Sex: Female

DRUGS (1)
  1. ACTEMRA [Suspect]
     Active Substance: TOCILIZUMAB
     Indication: Rheumatoid arthritis
     Route: 058
     Dates: start: 201703

REACTIONS (13)
  - Fall [Unknown]
  - Head injury [Unknown]
  - Balance disorder [Unknown]
  - Dizziness [Unknown]
  - Ill-defined disorder [Unknown]
  - Hypoaesthesia [Unknown]
  - Headache [Unknown]
  - Photosensitivity reaction [Unknown]
  - Ill-defined disorder [Unknown]
  - Ill-defined disorder [Unknown]
  - Cerebral haemorrhage [Unknown]
  - Hyperacusis [Unknown]
  - Fall [Unknown]
